FAERS Safety Report 9323451 (Version 1)
Quarter: 2013Q2

REPORT INFORMATION
  Report Type: Spontaneous
  Country: US (occurrence: US)
  Receive Date: 20130603
  Receipt Date: 20130603
  Transmission Date: 20140414
  Serious: No
  Sender: FDA-Public Use
  Company Number: US-PFIZER INC-2013166331

PATIENT
  Age: 72 Year
  Sex: Female
  Weight: 72.11 kg

DRUGS (6)
  1. LYRICA [Suspect]
     Indication: COMPLEX REGIONAL PAIN SYNDROME
     Dosage: 75 MG, 2X/DAY
     Route: 048
     Dates: start: 201104
  2. LYRICA [Suspect]
     Dosage: 25 MG, UNK
     Route: 048
     Dates: end: 20130416
  3. TRAMADOL HCL [Suspect]
     Dosage: UNK
  4. NORTRIPTYLINE [Concomitant]
     Dosage: UNK
  5. WELCHOL [Concomitant]
     Indication: BLOOD CHOLESTEROL INCREASED
     Dosage: UNK
  6. TRICOR [Concomitant]
     Indication: BLOOD TRIGLYCERIDES INCREASED
     Dosage: UNK

REACTIONS (11)
  - Hyperaesthesia [Unknown]
  - Constipation [Unknown]
  - Drug withdrawal syndrome [Unknown]
  - Pain in extremity [Unknown]
  - Muscle spasms [Unknown]
  - Abdominal discomfort [Unknown]
  - Headache [Unknown]
  - Pain [Unknown]
  - Insomnia [Unknown]
  - Limb discomfort [Unknown]
  - Off label use [Unknown]
